FAERS Safety Report 8461840 (Version 2)
Quarter: 2012Q4

REPORT INFORMATION
  Report Type: 
  Country: US (occurrence: US)
  Receive Date: 20120315
  Receipt Date: 20121012
  Transmission Date: 20130627
  Serious: Yes (Other)
  Sender: FDA-Public Use
  Company Number: US-US-EMD SERONO, INC.-7117653

PATIENT
  Age: 30 None
  Sex: Male

DRUGS (1)
  1. REBIF [Suspect]
     Route: 064

REACTIONS (2)
  - Asperger^s disorder [Not Recovered/Not Resolved]
  - Foetal exposure during pregnancy [Recovered/Resolved]
